FAERS Safety Report 6720137-1 (Version None)
Quarter: 2010Q2

REPORT INFORMATION
  Report Type: 
  Country: None (occurrence: None)
  Receive Date: 20100511
  Receipt Date: 20100507
  Transmission Date: 20101027
  Serious: Yes (Death)
  Sender: FDA-Public Use
  Company Number: US-CEPHALON-2010002611

PATIENT
  Sex: Male
  Weight: 89 kg

DRUGS (3)
  1. NUVIGIL [Suspect]
     Indication: BIPOLAR I DISORDER
     Route: 048
  2. LITHIUM CARBONATE [Concomitant]
     Indication: BIPOLAR I DISORDER
     Route: 048
     Dates: start: 20100218
  3. LITHIUM CARBONATE [Concomitant]
     Dates: start: 20100218

REACTIONS (1)
  - DEATH [None]
